FAERS Safety Report 23357541 (Version 1)
Quarter: 2024Q1

REPORT INFORMATION
  Report Type: Spontaneous
  Country: CO (occurrence: CO)
  Receive Date: 20240102
  Receipt Date: 20240102
  Transmission Date: 20240409
  Serious: Yes (Other)
  Sender: FDA-Public Use
  Company Number: CO-BAYER-2023A186117

PATIENT
  Age: 34 Year
  Sex: Female

DRUGS (3)
  1. MIRENA [Suspect]
     Active Substance: LEVONORGESTREL
     Indication: Heavy menstrual bleeding
     Dosage: 20?G/DAY
     Route: 015
     Dates: start: 20231202, end: 20231223
  2. CHLOROQUINE [Concomitant]
     Active Substance: CHLOROQUINE
     Indication: Vasculitis
     Dosage: UNK
     Dates: start: 2021
  3. VITAMIN D NOS [Concomitant]
     Active Substance: VITAMIN D NOS
     Indication: Vasculitis
     Dosage: UNK
     Dates: start: 2021

REACTIONS (5)
  - Pelvic pain [Recovered/Resolved]
  - Disability [Recovered/Resolved]
  - Asthenia [Not Recovered/Not Resolved]
  - Dizziness [Not Recovered/Not Resolved]
  - Pain [Recovered/Resolved]

NARRATIVE: CASE EVENT DATE: 20231202
